FAERS Safety Report 6653165-5 (Version None)
Quarter: 2010Q1

REPORT INFORMATION
  Report Type: 
  Country: None (occurrence: None)
  Receive Date: 20100326
  Receipt Date: 20100324
  Transmission Date: 20100710
  Serious: Yes (Other)
  Sender: FDA-Public Use
  Company Number: PHHY2009BR55798

PATIENT
  Age: 90 Year
  Sex: Female
  Weight: 47 kg

DRUGS (4)
  1. EXELON [Suspect]
     Indication: DEMENTIA ALZHEIMER'S TYPE
     Dosage: 1 PATCH (18 MG/10 CM2) EVERY 24 HRS
     Route: 062
     Dates: start: 20080101
  2. GINKGO BILOBA [Concomitant]
     Dosage: 1 TABLET PER DAY
     Route: 048
  3. ISKEMIL [Concomitant]
     Dosage: 6 MG TABLET PER DAY
  4. RISPERIDONE [Concomitant]
     Dosage: 2 TABLETS DAILY

REACTIONS (3)
  - APPLICATION SITE ERYTHEMA [None]
  - APPLICATION SITE VESICLES [None]
  - HYPERSENSITIVITY [None]
